FAERS Safety Report 22175521 (Version 1)
Quarter: 2023Q2

REPORT INFORMATION
  Report Type: Spontaneous
  Country: US (occurrence: US)
  Receive Date: 20230405
  Receipt Date: 20230405
  Transmission Date: 20230722
  Serious: No
  Sender: FDA-Public Use
  Company Number: US-BRISTOL-MYERS SQUIBB COMPANY-2023-047301

PATIENT
  Age: 69 Year
  Sex: Male
  Weight: 117.48 kg

DRUGS (3)
  1. REVLIMID [Suspect]
     Active Substance: LENALIDOMIDE
     Indication: Plasma cell myeloma
     Dosage: DAILY FOR 21DAYS
     Route: 048
     Dates: start: 20230301
  2. REVLIMID [Suspect]
     Active Substance: LENALIDOMIDE
     Indication: Plasma cell myeloma in remission
     Dosage: 21 DAYS
     Route: 048
     Dates: start: 20230317
  3. REVLIMID [Suspect]
     Active Substance: LENALIDOMIDE

REACTIONS (4)
  - Hypersensitivity [Unknown]
  - Swelling [Unknown]
  - Erythema [Unknown]
  - Paraesthesia [Unknown]
